FAERS Safety Report 8763771 (Version 3)
Quarter: 2012Q4

REPORT INFORMATION
  Report Type: 
  Country: IT (occurrence: IT)
  Receive Date: 20120831
  Receipt Date: 20120920
  Transmission Date: 20130627
  Serious: Yes (Hospitalization)
  Sender: FDA-Public Use
  Company Number: PHHY2012IT075371

PATIENT
  Age: 60 Year
  Sex: Male

DRUGS (3)
  1. AFINITOR [Suspect]
     Indication: RENAL CANCER
     Dosage: 10 mg, daily
     Route: 048
     Dates: start: 20120615
  2. TAPENTADOL HYDROCHLORIDE [Concomitant]
     Dosage: 200 mg, UNK
     Route: 048
  3. CARDURA [Concomitant]
     Dosage: 4 mg, UNK
     Route: 048
     Dates: start: 2010, end: 20120810

REACTIONS (5)
  - Papilloedema [Recovering/Resolving]
  - Visual acuity reduced [Recovering/Resolving]
  - Eye disorder [None]
  - Retinal exudates [None]
  - Eye haemorrhage [None]
